FAERS Safety Report 16561661 (Version 7)
Quarter: 2020Q2

REPORT INFORMATION
  Report Type: Spontaneous
  Country: US (occurrence: US)
  Receive Date: 20190711
  Receipt Date: 20200417
  Transmission Date: 20200713
  Serious: Yes (Death, Hospitalization, Other)
  Sender: FDA-Public Use
  Company Number: US-BIOMARINAP-US-2019-124597

PATIENT
  Age: 16 Year
  Sex: Female

DRUGS (2)
  1. BENAZEPRIL [Concomitant]
     Active Substance: BENAZEPRIL HYDROCHLORIDE
     Indication: PRODUCT USED FOR UNKNOWN INDICATION
  2. ALDURAZYME [Suspect]
     Active Substance: LARONIDASE
     Indication: MUCOPOLYSACCHARIDOSIS I
     Dosage: 31.9 MILLIGRAM, QOW
     Route: 042
     Dates: start: 20180813

REACTIONS (12)
  - Cardiac failure [Not Recovered/Not Resolved]
  - Cardiomegaly [Unknown]
  - Endotracheal intubation [Unknown]
  - Lung disorder [Not Recovered/Not Resolved]
  - Cough [Recovering/Resolving]
  - Pneumonia [Recovering/Resolving]
  - Dyspnoea [Recovering/Resolving]
  - Mitral valve incompetence [Not Recovered/Not Resolved]
  - Spinal operation [Unknown]
  - Gastrointestinal tube insertion [Unknown]
  - Death [Fatal]
  - Neck surgery [Unknown]

NARRATIVE: CASE EVENT DATE: 2019
